FAERS Safety Report 4727640-4 (Version None)
Quarter: 2005Q3

REPORT INFORMATION
  Report Type: 
  Country: None (occurrence: None)
  Receive Date: 20050727
  Receipt Date: 20050727
  Transmission Date: 20060218
  Serious: Yes (Hospitalization)
  Sender: FDA-Public Use
  Company Number: None

PATIENT
  Age: 49 Year
  Sex: Female
  Weight: 84.8226 kg

DRUGS (1)
  1. BONIVA [Suspect]
     Indication: OSTEOPOROSIS
     Dosage: 150 MG ONCE A MONTH ORAL
     Route: 048
     Dates: start: 20050717, end: 20050726

REACTIONS (2)
  - BLOOD CALCIUM DECREASED [None]
  - TREMOR [None]
